FAERS Safety Report 11905823 (Version 1)
Quarter: 2016Q1

REPORT INFORMATION
  Report Type: Spontaneous
  Country: BR (occurrence: BR)
  Receive Date: 20160111
  Receipt Date: 20160111
  Transmission Date: 20160526
  Serious: Yes (Hospitalization)
  Sender: FDA-Public Use
  Company Number: BR-BAUSCH-BL-2015-031195

PATIENT
  Sex: Female
  Weight: 6 kg

DRUGS (1)
  1. TIMOPTOL-XE [Suspect]
     Active Substance: TIMOLOL
     Indication: INTRAOCULAR PRESSURE INCREASED
     Dosage: IN EACH EYE
     Route: 047

REACTIONS (1)
  - Cataract operation [Unknown]
